FAERS Safety Report 9432193 (Version 1)
Quarter: 2013Q3

REPORT INFORMATION
  Report Type: Spontaneous
  Country: PT (occurrence: PT)
  Receive Date: 20130731
  Receipt Date: 20130731
  Transmission Date: 20140515
  Serious: Yes (Death)
  Sender: FDA-Public Use
  Company Number: PT-ASTELLAS-2013US007981

PATIENT
  Age: 10 Year
  Sex: Male
  Weight: 40 kg

DRUGS (1)
  1. AMBISOME [Suspect]
     Indication: PRODUCT USED FOR UNKNOWN INDICATION
     Dosage: 3 MG/KG, UID/QD
     Route: 065
     Dates: start: 20130131

REACTIONS (1)
  - Infection [Fatal]
